FAERS Safety Report 10208282 (Version 1)
Quarter: 2014Q2

REPORT INFORMATION
  Report Type: Spontaneous
  Country: US (occurrence: None)
  Receive Date: 20140529
  Receipt Date: 20140529
  Transmission Date: 20141212
  Serious: Yes (Other)
  Sender: FDA-Public Use
  Company Number: None

PATIENT
  Age: 17 Year
  Sex: Female

DRUGS (3)
  1. SEROQUEL 25 MG FILM-COATED TABLET [Suspect]
     Indication: EPILEPSY
     Dosage: III (THREE TIMES) QHS PO
     Route: 048
     Dates: start: 200907
  2. SEROQUEL 25 MG FILM-COATED TABLET [Suspect]
     Indication: CHEST PAIN
     Dosage: III (THREE TIMES) QHS PO
     Route: 048
     Dates: start: 200907
  3. SEROQUEL 25 MG FILM-COATED TABLET [Suspect]
     Indication: INSOMNIA
     Dosage: III (THREE TIMES) QHS PO
     Route: 048
     Dates: start: 200907

REACTIONS (2)
  - Product substitution issue [None]
  - Insomnia [None]
